FAERS Safety Report 13528987 (Version 1)
Quarter: 2017Q2

REPORT INFORMATION
  Report Type: Spontaneous
  Country: US (occurrence: US)
  Receive Date: 20170509
  Receipt Date: 20170509
  Transmission Date: 20170830
  Serious: No
  Sender: FDA-Public Use
  Company Number: US-GILEAD-2017-0270945

PATIENT
  Age: 58 Year
  Sex: Male

DRUGS (7)
  1. GLUTAMINE [Concomitant]
     Active Substance: GLUTAMINE
  2. SEROSTIM [Concomitant]
     Active Substance: SOMATROPIN
  3. ACETYLCYSTEINE. [Concomitant]
     Active Substance: ACETYLCYSTEINE
  4. HARVONI [Suspect]
     Active Substance: LEDIPASVIR\SOFOSBUVIR
     Indication: PRODUCT USED FOR UNKNOWN INDICATION
     Route: 065
  5. OMEGA 3                            /01333901/ [Concomitant]
     Active Substance: FISH OIL\TOCOPHEROL
  6. GLUCOSAMINE [Concomitant]
     Active Substance: GLUCOSAMINE
  7. VITAMIN 15 [Concomitant]

REACTIONS (2)
  - Tongue coated [Unknown]
  - Breath odour [Unknown]
